FAERS Safety Report 25973019 (Version 1)
Quarter: 2025Q4

REPORT INFORMATION
  Report Type: Report from Study
  Country: JP (occurrence: JP)
  Receive Date: 20251029
  Receipt Date: 20251029
  Transmission Date: 20260118
  Serious: Yes (Other)
  Sender: ROCHE
  Company Number: JP-ROCHE-10000420343

PATIENT

DRUGS (2)
  1. RITUXAN [Suspect]
     Active Substance: RITUXIMAB
     Indication: Prophylaxis against transplant rejection
     Route: 042
  2. BASILIXIMAB(GENETICAL RECOMBINATION) [Concomitant]
     Indication: Prophylaxis against transplant rejection
     Route: 065

REACTIONS (1)
  - Liver transplant rejection [Unknown]
